FAERS Safety Report 7904586-1 (Version None)
Quarter: 2011Q4

REPORT INFORMATION
  Report Type: 
  Country: None (occurrence: None)
  Receive Date: 20111109
  Receipt Date: 20111028
  Transmission Date: 20120403
  Serious: Yes (Hospitalization)
  Sender: FDA-Public Use
  Company Number: US-GLAXOSMITHKLINE-A0888824A

PATIENT
  Age: 66 Year
  Sex: Male
  Weight: 167.3 kg

DRUGS (8)
  1. FLOVENT [Concomitant]
  2. MONOPRIL [Concomitant]
  3. GLUCOPHAGE [Concomitant]
  4. FAMVIR [Concomitant]
  5. NORVASC [Concomitant]
  6. SYNTHROID [Concomitant]
  7. AVANDIA [Suspect]
     Indication: DIABETES MELLITUS
     Dosage: 8MG PER DAY
     Route: 048
  8. COMBIVENT [Concomitant]

REACTIONS (3)
  - MYOCARDIAL INFARCTION [None]
  - CARDIAC FAILURE CONGESTIVE [None]
  - ATRIAL FIBRILLATION [None]
